FAERS Safety Report 19237843 (Version 2)
Quarter: 2021Q3

REPORT INFORMATION
  Report Type: Spontaneous
  Country: US (occurrence: US)
  Receive Date: 20210510
  Receipt Date: 20210927
  Transmission Date: 20211014
  Serious: Yes (Hospitalization)
  Sender: FDA-Public Use
  Company Number: US-AMNEAL PHARMACEUTICALS-2021-AMRX-01502

PATIENT
  Sex: Female
  Weight: 6 kg

DRUGS (5)
  1. VALPROATE SODIUM. [Concomitant]
     Active Substance: VALPROATE SODIUM
     Indication: PRODUCT USED FOR UNKNOWN INDICATION
     Dosage: 500 MG/5 ML
     Route: 065
  2. VIGABATRIN. [Suspect]
     Active Substance: VIGABATRIN
     Indication: INFANTILE SPASMS
     Dosage: 750 MILLIGRAM, 2X/DAY
     Route: 048
     Dates: end: 2021
  3. VANCOMYCIN HYDROCHLORIDE. [Concomitant]
     Active Substance: VANCOMYCIN HYDROCHLORIDE
     Indication: PRODUCT USED FOR UNKNOWN INDICATION
     Dosage: 10G VIAL
     Route: 065
  4. VIGABATRIN. [Suspect]
     Active Substance: VIGABATRIN
     Dosage: 750 MILLIGRAM, 2X/DAY
     Route: 048
  5. EVEROLIMUS. [Concomitant]
     Active Substance: EVEROLIMUS
     Indication: PRODUCT USED FOR UNKNOWN INDICATION
     Dosage: 2.5 MILLIGRAM, UNK
     Route: 065

REACTIONS (2)
  - Adverse event [Unknown]
  - Therapy cessation [Unknown]

NARRATIVE: CASE EVENT DATE: 2021
